FAERS Safety Report 14784233 (Version 2)
Quarter: 2018Q2

REPORT INFORMATION
  Report Type: Spontaneous
  Country: US (occurrence: US)
  Receive Date: 20180420
  Receipt Date: 20180611
  Transmission Date: 20180711
  Serious: Yes (Hospitalization)
  Sender: FDA-Public Use
  Company Number: US-UNITED THERAPEUTICS-UNT-2018-005038

PATIENT
  Age: 48 Year
  Sex: Female
  Weight: 106.12 kg

DRUGS (5)
  1. OPSUMIT [Concomitant]
     Active Substance: MACITENTAN
     Indication: PRODUCT USED FOR UNKNOWN INDICATION
     Route: 065
  2. LASIX [Concomitant]
     Active Substance: FUROSEMIDE
     Indication: PRODUCT USED FOR UNKNOWN INDICATION
     Route: 065
  3. REMODULIN [Suspect]
     Active Substance: TREPROSTINIL
     Indication: PULMONARY HYPERTENSION
     Dosage: 0.004 ?G/KG, CONTINUING
     Route: 058
     Dates: start: 20180329
  4. REMODULIN [Suspect]
     Active Substance: TREPROSTINIL
     Indication: PULMONARY ARTERIAL HYPERTENSION
     Dosage: UNK
     Route: 058
  5. SILDENAFIL CITRATE. [Concomitant]
     Active Substance: SILDENAFIL CITRATE
     Indication: PRODUCT USED FOR UNKNOWN INDICATION
     Route: 065

REACTIONS (13)
  - Diarrhoea [Unknown]
  - Vomiting [Unknown]
  - Fluid retention [Unknown]
  - Hyperkalaemia [Unknown]
  - Hypokalaemia [Unknown]
  - Infusion site pain [Unknown]
  - Headache [Unknown]
  - Infusion site erythema [Unknown]
  - Infusion site extravasation [Unknown]
  - Nausea [Unknown]
  - Infusion site nodule [Unknown]
  - Fatigue [Unknown]
  - Infusion site swelling [Unknown]

NARRATIVE: CASE EVENT DATE: 20180411
